FAERS Safety Report 20089273 (Version 4)
Quarter: 2022Q1

REPORT INFORMATION
  Report Type: Spontaneous
  Country: US (occurrence: US)
  Receive Date: 20211119
  Receipt Date: 20220104
  Transmission Date: 20220423
  Serious: Yes (Life-Threatening, Hospitalization, Other)
  Sender: FDA-Public Use
  Company Number: US-Accord-245304

PATIENT
  Age: 32 Year
  Sex: Male
  Weight: 89.36 kg

DRUGS (1)
  1. CLOZAPINE [Suspect]
     Active Substance: CLOZAPINE
     Indication: Schizophrenia
     Dosage: 12.5 MG TWICE A DAY AND UP TITRATED EVERY THREE DAYS TO A DOSE OF 100 MG TWICE A DAY AFTER TWO WEEKS
     Dates: start: 2020, end: 2020

REACTIONS (2)
  - Pericarditis [Recovered/Resolved]
  - Orthostatic hypotension [Recovered/Resolved]

NARRATIVE: CASE EVENT DATE: 20200207
